FAERS Safety Report 13847235 (Version 1)
Quarter: 2017Q3

REPORT INFORMATION
  Report Type: Spontaneous
  Country: US (occurrence: US)
  Receive Date: 20170808
  Receipt Date: 20170808
  Transmission Date: 20171127
  Serious: No
  Sender: FDA-Public Use
  Company Number: GXBR2016US002668

PATIENT
  Age: 57 Year
  Sex: Male

DRUGS (1)
  1. CLONAZEPAM TABLETS, USP [Suspect]
     Active Substance: CLONAZEPAM
     Indication: INSOMNIA
     Dosage: 1 MG, (1-2 TABLETS), QHS
     Route: 048
     Dates: start: 201512, end: 201606

REACTIONS (5)
  - Confusional state [Recovered/Resolved]
  - Depression [Not Recovered/Not Resolved]
  - Head discomfort [Recovered/Resolved]
  - Insomnia [Recovering/Resolving]
  - Dizziness [Recovered/Resolved]

NARRATIVE: CASE EVENT DATE: 201601
